FAERS Safety Report 12569878 (Version 1)
Quarter: 2016Q3

REPORT INFORMATION
  Report Type: Spontaneous
  Country: IT (occurrence: IT)
  Receive Date: 20160719
  Receipt Date: 20160719
  Transmission Date: 20161109
  Serious: Yes (Hospitalization, Other)
  Sender: FDA-Public Use
  Company Number: IT-GLAXOSMITHKLINE-IT2016GSK102500

PATIENT
  Age: 63 Year
  Sex: Male

DRUGS (1)
  1. VOLTAREN [Suspect]
     Active Substance: DICLOFENAC SODIUM
     Indication: ARTHRALGIA
     Dosage: 100 MG, 1D
     Route: 048
     Dates: start: 20160606, end: 20160623

REACTIONS (3)
  - Anal erosion [Unknown]
  - Gastritis erosive [Recovering/Resolving]
  - Gastric mucosa erythema [Recovering/Resolving]

NARRATIVE: CASE EVENT DATE: 20160623
